FAERS Safety Report 25766162 (Version 1)
Quarter: 2025Q3

REPORT INFORMATION
  Report Type: Spontaneous
  Country: US (occurrence: US)
  Receive Date: 20250905
  Receipt Date: 20250905
  Transmission Date: 20251020
  Serious: No
  Sender: DOMPE FARMACEUTICI
  Company Number: US-FARMAPROD-202408-2852

PATIENT
  Sex: Male

DRUGS (27)
  1. OXERVATE [Suspect]
     Active Substance: CENEGERMIN-BKBJ
     Indication: Neurotrophic keratopathy
     Route: 047
     Dates: start: 20240729
  2. OXERVATE [Suspect]
     Active Substance: CENEGERMIN-BKBJ
  3. OXERVATE [Suspect]
     Active Substance: CENEGERMIN-BKBJ
  4. GABAPENTIN [Concomitant]
     Active Substance: GABAPENTIN
  5. LATANOPROST [Concomitant]
     Active Substance: LATANOPROST
  6. SENOKOT [Concomitant]
     Active Substance: SENNOSIDES
  7. TROSPIUM CHLORIDE [Concomitant]
     Active Substance: TROSPIUM CHLORIDE
  8. TRAMADOL HCL [Concomitant]
     Active Substance: TRAMADOL HYDROCHLORIDE
  9. AZELASTINE HYDROCHLORIDE [Concomitant]
     Active Substance: AZELASTINE HYDROCHLORIDE
  10. ASPIRIN [Concomitant]
     Active Substance: ASPIRIN
  11. OMEPRAZOLE [Concomitant]
     Active Substance: OMEPRAZOLE
  12. SODIUM BICARBONATE [Concomitant]
     Active Substance: SODIUM BICARBONATE
  13. COMPAZINE [Concomitant]
     Active Substance: PROCHLORPERAZINE MALEATE
  14. ONDANSETRON HYDROCHLORIDE [Concomitant]
     Active Substance: ONDANSETRON HYDROCHLORIDE
  15. MIRALAX [Concomitant]
     Active Substance: POLYETHYLENE GLYCOL 3350
  16. FLONASE ALLERGY RELIEF [Concomitant]
     Active Substance: FLUTICASONE PROPIONATE
  17. DORZOLAMIDE HYDROCHLORIDE [Concomitant]
     Active Substance: DORZOLAMIDE HYDROCHLORIDE
  18. PRAVASTATIN SODIUM [Concomitant]
     Active Substance: PRAVASTATIN SODIUM
  19. NOVOLOG [Concomitant]
     Active Substance: INSULIN ASPART
  20. BAQSIMI [Concomitant]
     Active Substance: GLUCAGON
  21. MULTIVITAMIN 50 PLUS [Concomitant]
  22. MAGNESIUM OXIDE [Concomitant]
     Active Substance: MAGNESIUM OXIDE
  23. MOXIFLOXACIN [Concomitant]
     Active Substance: MOXIFLOXACIN
  24. HUMALOG [Concomitant]
     Active Substance: INSULIN LISPRO
  25. LANTUS SOLOSTAR [Concomitant]
     Active Substance: INSULIN GLARGINE
  26. VALTREX [Concomitant]
     Active Substance: VALACYCLOVIR HYDROCHLORIDE
  27. BACTRIM DS [Concomitant]
     Active Substance: SULFAMETHOXAZOLE\TRIMETHOPRIM

REACTIONS (5)
  - Influenza like illness [Not Recovered/Not Resolved]
  - Arthralgia [Not Recovered/Not Resolved]
  - Oropharyngeal pain [Not Recovered/Not Resolved]
  - Cough [Not Recovered/Not Resolved]
  - Eye discharge [Unknown]
